FAERS Safety Report 8559079-8 (Version None)
Quarter: 2012Q3

REPORT INFORMATION
  Report Type: 
  Country: None (occurrence: None)
  Receive Date: 20120802
  Receipt Date: 20120725
  Transmission Date: 20120928
  Serious: No
  Sender: FDA-Public Use
  Company Number: US-BIOGENIDEC-2012BI027890

PATIENT
  Sex: Female

DRUGS (3)
  1. TYSABRI [Suspect]
     Indication: MULTIPLE SCLEROSIS
     Route: 042
     Dates: start: 20070101
  2. TYSABRI [Suspect]
     Route: 042
     Dates: start: 20070718, end: 20110419
  3. TYSABRI [Suspect]
     Route: 042
     Dates: start: 20120713

REACTIONS (1)
  - COGNITIVE DISORDER [None]
